FAERS Safety Report 6480012-7 (Version None)
Quarter: 2009Q4

REPORT INFORMATION
  Report Type: 
  Country: None (occurrence: None)
  Receive Date: 20091208
  Receipt Date: 20091112
  Transmission Date: 20100525
  Serious: Yes (Hospitalization)
  Sender: FDA-Public Use
  Company Number: JP-SANOFI-AVENTIS-F01200900928

PATIENT
  Age: 79 Year
  Sex: Female
  Weight: 49.9 kg

DRUGS (11)
  1. CLOPIDOGREL BISULFATE [Suspect]
     Indication: ACUTE CORONARY SYNDROME
     Dosage: DOSE TEXT: MAINTENANCE DOSE
     Route: 048
     Dates: start: 20080921
  2. CLOPIDOGREL BISULFATE [Suspect]
     Indication: ANGINA UNSTABLE
     Dosage: DOSE TEXT: MAINTENANCE DOSE
     Route: 048
     Dates: start: 20080921
  3. ASPIRIN [Suspect]
     Indication: ANGINA UNSTABLE
     Route: 048
  4. AMLODIPINE [Concomitant]
     Route: 048
  5. RENIVACE [Concomitant]
     Route: 048
  6. MEVALOTIN [Concomitant]
     Route: 048
     Dates: end: 20080923
  7. MEVALOTIN [Concomitant]
     Route: 048
     Dates: start: 20080924, end: 20080924
  8. WARFARIN SODIUM [Concomitant]
     Route: 048
  9. HUMALOG [Concomitant]
     Route: 058
  10. HUMACART-N [Concomitant]
     Route: 048
  11. NITOROL [Concomitant]
     Indication: ANGINA UNSTABLE
     Route: 022
     Dates: start: 20080924, end: 20080924

REACTIONS (1)
  - COLITIS ISCHAEMIC [None]
